FAERS Safety Report 7565371-6 (Version None)
Quarter: 2011Q2

REPORT INFORMATION
  Report Type: 
  Country: None (occurrence: None)
  Receive Date: 20110623
  Receipt Date: 20110617
  Transmission Date: 20111010
  Serious: No
  Sender: FDA-Public Use
  Company Number: US-BIOGENIDEC-2011BI003745

PATIENT
  Age: 55 Year
  Sex: Female

DRUGS (1)
  1. TYSABRI [Suspect]
     Indication: MULTIPLE SCLEROSIS
     Route: 042
     Dates: start: 20080730

REACTIONS (7)
  - VISUAL IMPAIRMENT [None]
  - APHASIA [None]
  - SPEECH DISORDER [None]
  - NUCLEAR MAGNETIC RESONANCE IMAGING ABNORMAL [None]
  - DISTURBANCE IN ATTENTION [None]
  - FATIGUE [None]
  - MENTAL IMPAIRMENT [None]
